FAERS Safety Report 4619735-0 (Version None)
Quarter: 2005Q1

REPORT INFORMATION
  Report Type: 
  Country: None (occurrence: None)
  Receive Date: 20050325
  Receipt Date: 20050301
  Transmission Date: 20050727
  Serious: Yes (Hospitalization, Disabling)
  Sender: FDA-Public Use
  Company Number: JP-MERCK-0503USA00215

PATIENT
  Age: 66 Year
  Sex: Female
  Weight: 55 kg

DRUGS (5)
  1. DECADRON PHOSPHATE [Suspect]
     Indication: VOMITING
     Route: 042
     Dates: start: 20031106, end: 20031106
  2. FARMORUBICIN [Suspect]
     Indication: BREAST CANCER
     Route: 042
     Dates: start: 20031106, end: 20031106
  3. ENDOXAN [Suspect]
     Indication: BREAST CANCER
     Route: 042
     Dates: start: 20031106, end: 20031106
  4. PEPCID [Suspect]
     Route: 048
     Dates: start: 20031106, end: 20031106
  5. SEROTONE [Suspect]
     Indication: VOMITING
     Route: 042
     Dates: start: 20031106, end: 20031106

REACTIONS (4)
  - CEREBRAL INFARCTION [None]
  - DIPLEGIA [None]
  - FALL [None]
  - WHITE BLOOD CELL COUNT DECREASED [None]
